FAERS Safety Report 10029715 (Version 1)
Quarter: 2014Q1

REPORT INFORMATION
  Report Type: Spontaneous
  Country: US (occurrence: None)
  Receive Date: 20140321
  Receipt Date: 20140321
  Transmission Date: 20141002
  Serious: Yes (Hospitalization, Other)
  Sender: FDA-Public Use
  Company Number: None

PATIENT
  Age: 56 Year
  Sex: Male
  Weight: 79.38 kg

DRUGS (1)
  1. INTUNIV 1MG TO 3MG SHIRE [Suspect]
     Indication: ATTENTION DEFICIT/HYPERACTIVITY DISORDER
     Dosage: 1MG AM TO 3MG AM  DAILY  P.O.
     Route: 048
     Dates: start: 201109, end: 201310

REACTIONS (5)
  - Dyspnoea [None]
  - Dizziness [None]
  - Asthenia [None]
  - Mitral valve disease [None]
  - Condition aggravated [None]
